FAERS Safety Report 18415680 (Version 1)
Quarter: 2020Q4

REPORT INFORMATION
  Report Type: Spontaneous
  Country: GB (occurrence: GB)
  Receive Date: 20201022
  Receipt Date: 20201022
  Transmission Date: 20210114
  Serious: Yes (Other)
  Sender: FDA-Public Use
  Company Number: GB-TEVA-2020-GB-1840240

PATIENT
  Age: 63 Year
  Sex: Female

DRUGS (9)
  1. LEVOFLOXACIN. [Suspect]
     Active Substance: LEVOFLOXACIN
     Indication: LOWER RESPIRATORY TRACT INFECTION
     Dosage: 500 MG
     Route: 048
     Dates: start: 20200827, end: 20200906
  2. OXIS [Concomitant]
     Active Substance: FORMOTEROL FUMARATE
  3. MONTELUKAST SODIUM. [Concomitant]
     Active Substance: MONTELUKAST SODIUM
  4. BRICANYL [Concomitant]
     Active Substance: TERBUTALINE SULFATE
  5. MEBEVERINE [Concomitant]
     Active Substance: MEBEVERINE
  6. FLIXOTIDE [Concomitant]
     Active Substance: FLUTICASONE PROPIONATE
  7. AZITHROMYCIN ANHYDROUS. [Concomitant]
     Active Substance: AZITHROMYCIN ANHYDROUS
  8. FUROSEMIDE. [Concomitant]
     Active Substance: FUROSEMIDE
  9. LANSOPRAZOLE. [Concomitant]
     Active Substance: LANSOPRAZOLE

REACTIONS (4)
  - Arthralgia [Recovering/Resolving]
  - Arthralgia [Unknown]
  - Back pain [Unknown]
  - Fatigue [Unknown]

NARRATIVE: CASE EVENT DATE: 20200903
